FAERS Safety Report 5675262-3 (Version None)
Quarter: 2008Q1

REPORT INFORMATION
  Report Type: 
  Country: None (occurrence: None)
  Receive Date: 20080320
  Receipt Date: 20080310
  Transmission Date: 20080703
  Serious: Yes (Other)
  Sender: FDA-Public Use
  Company Number: US-ELI_LILLY_AND_COMPANY-US200801006025

PATIENT
  Sex: Female
  Weight: 57.596 kg

DRUGS (4)
  1. FORTEO [Suspect]
     Indication: OSTEOPOROSIS
     Dosage: 20 UG, DAILY (1/D)
     Dates: start: 20071201, end: 20071201
  2. FORTEO [Suspect]
     Dosage: 20 UG, QOD
     Dates: start: 20080101, end: 20080115
  3. CALCIUM [Concomitant]
     Indication: SUPPLEMENTATION THERAPY
  4. MULTI-VITAMIN [Concomitant]
     Indication: SUPPLEMENTATION THERAPY

REACTIONS (6)
  - FEELING ABNORMAL [None]
  - HEART RATE INCREASED [None]
  - IRRITABILITY [None]
  - NERVOUSNESS [None]
  - PARAESTHESIA [None]
  - SCREAMING [None]
